FAERS Safety Report 14565579 (Version 2)
Quarter: 2020Q4

REPORT INFORMATION
  Report Type: Spontaneous
  Country: IT (occurrence: IT)
  Receive Date: 20180223
  Receipt Date: 20201104
  Transmission Date: 20210113
  Serious: Yes (Other)
  Sender: FDA-Public Use
  Company Number: IT-AUROBINDO-AUR-APL-2018-009814

PATIENT
  Age: 36 Year
  Sex: Female

DRUGS (2)
  1. LEVETIRACETAM FILM-COATED TABLET [Suspect]
     Active Substance: LEVETIRACETAM
     Indication: EPILEPSY
     Dosage: 3000 MILLIGRAM, ONCE A DAY
     Route: 048
  2. RUFINAMIDE [Suspect]
     Active Substance: RUFINAMIDE
     Indication: EPILEPSY
     Dosage: 800 MILLIGRAM
     Route: 048

REACTIONS (3)
  - Abortion spontaneous [Recovered/Resolved]
  - Stillbirth [Recovered/Resolved]
  - Exposure during pregnancy [Recovered/Resolved]
